FAERS Safety Report 5478081-6 (Version None)
Quarter: 2007Q4

REPORT INFORMATION
  Report Type: 
  Country: None (occurrence: None)
  Receive Date: 20071005
  Receipt Date: 20070926
  Transmission Date: 20080405
  Serious: Yes (Hospitalization)
  Sender: FDA-Public Use
  Company Number: US-JNJFOC-20070905973

PATIENT
  Age: 23 Year
  Sex: Female
  Weight: 81.65 kg

DRUGS (1)
  1. RISPERDAL [Suspect]
     Indication: SCHIZOPHRENIA
     Route: 048

REACTIONS (8)
  - AMENORRHOEA [None]
  - DIABETES INSIPIDUS [None]
  - DIPLOPIA [None]
  - HEADACHE [None]
  - INTRACRANIAL HYPOTENSION [None]
  - LACTATION DISORDER [None]
  - MENORRHAGIA [None]
  - PITUITARY TUMOUR BENIGN [None]
